FAERS Safety Report 7145552-6 (Version None)
Quarter: 2010Q4

REPORT INFORMATION
  Report Type: 
  Country: None (occurrence: None)
  Receive Date: 20101123
  Receipt Date: 20101115
  Transmission Date: 20110411
  Serious: Yes (Hospitalization, Disabling)
  Sender: FDA-Public Use
  Company Number: 2010SP006325

PATIENT
  Age: 29 Year
  Sex: Female
  Weight: 53.978 kg

DRUGS (5)
  1. NUVARING [Suspect]
     Indication: CONTRACEPTION
     Dosage: VAG
     Route: 067
     Dates: start: 20070106, end: 20070704
  2. VALTREX [Concomitant]
  3. TRAMADOL HYDROCHLORIDE AND ACETAMINOPHEN [Concomitant]
  4. VENTOLIN [Concomitant]
  5. FIORICET [Concomitant]

REACTIONS (62)
  - ACTIVITIES OF DAILY LIVING IMPAIRED [None]
  - AGGRESSION [None]
  - AGITATION [None]
  - ANTITHROMBIN III DECREASED [None]
  - ANXIETY [None]
  - APHASIA [None]
  - ASTHMA [None]
  - BALANCE DISORDER [None]
  - BRAIN INJURY [None]
  - CEREBRAL HAEMATOMA [None]
  - CEREBRAL HAEMORRHAGE [None]
  - CEREBRAL INFARCTION [None]
  - CEREBROVASCULAR ACCIDENT [None]
  - CHEST PAIN [None]
  - CHOKING [None]
  - COAGULATION FACTOR VIII LEVEL INCREASED [None]
  - COGNITIVE DISORDER [None]
  - CONFUSIONAL STATE [None]
  - CONVERSION DISORDER [None]
  - CONVULSION [None]
  - DISTURBANCE IN ATTENTION [None]
  - DIZZINESS [None]
  - DRUG RESISTANCE [None]
  - DYSGRAPHIA [None]
  - ENCEPHALOMALACIA [None]
  - FATIGUE [None]
  - GAIT DISTURBANCE [None]
  - GRAND MAL CONVULSION [None]
  - GRANULOMA [None]
  - HEADACHE [None]
  - HEARING IMPAIRED [None]
  - HEMIPARESIS [None]
  - HYPERCOAGULATION [None]
  - HYPOAESTHESIA [None]
  - INTERNATIONAL NORMALISED RATIO FLUCTUATION [None]
  - INTERVERTEBRAL DISC SPACE NARROWING [None]
  - JUGULAR VEIN THROMBOSIS [None]
  - LOSS OF CONSCIOUSNESS [None]
  - MEMORY IMPAIRMENT [None]
  - MENTAL DISORDER [None]
  - MIGRAINE [None]
  - MUSCULOSKELETAL DISCOMFORT [None]
  - NAUSEA [None]
  - PAIN IN EXTREMITY [None]
  - PANIC ATTACK [None]
  - PARTIAL SEIZURES [None]
  - PNEUMONIA ASPIRATION [None]
  - PROTEIN C DECREASED [None]
  - PYREXIA [None]
  - READING DISORDER [None]
  - SOMNOLENCE [None]
  - SPINAL OSTEOARTHRITIS [None]
  - STRIDOR [None]
  - TENDONITIS [None]
  - TRANSVERSE SINUS THROMBOSIS [None]
  - UNEVALUABLE EVENT [None]
  - VENOUS RECANALISATION [None]
  - VISION BLURRED [None]
  - VISUAL ACUITY REDUCED [None]
  - VOCAL CORD DISORDER [None]
  - VOCAL CORD PARALYSIS [None]
  - VOMITING [None]
